FAERS Safety Report 9565448 (Version 3)
Quarter: 2013Q4

REPORT INFORMATION
  Report Type: Report from Study
  Country: BR (occurrence: BR)
  Receive Date: 20130930
  Receipt Date: 20131202
  Transmission Date: 20140711
  Serious: Yes (Hospitalization, Other)
  Sender: FDA-Public Use
  Company Number: PHHY2013BR085958

PATIENT
  Age: 77 Year
  Sex: Female

DRUGS (5)
  1. ACLASTA [Suspect]
     Indication: OSTEOPOROSIS
     Dosage: 5 MG, ONCE A YEAR
     Route: 042
     Dates: start: 20101220
  2. ACLASTA [Suspect]
     Indication: BONE DENSITY DECREASED
     Dosage: 5 MG, ONCE A YEAR
     Route: 042
     Dates: start: 20120203
  3. ACLASTA [Suspect]
     Dosage: 5 MG, ONCE A YEAR
     Route: 042
     Dates: start: 20130114
  4. CALCIUM [Concomitant]
     Dosage: UNK
  5. VITAMIN D [Concomitant]

REACTIONS (6)
  - Femoral neck fracture [Recovering/Resolving]
  - Wrist fracture [Recovering/Resolving]
  - Fall [Recovered/Resolved]
  - Road traffic accident [Recovered/Resolved]
  - Femur fracture [Unknown]
  - Mobility decreased [Recovering/Resolving]
